FAERS Safety Report 10588878 (Version 1)
Quarter: 2014Q4

REPORT INFORMATION
  Report Type: Spontaneous
  Country: FR (occurrence: FR)
  Receive Date: 20141117
  Receipt Date: 20141117
  Transmission Date: 20150529
  Serious: Yes (Hospitalization)
  Sender: FDA-Public Use
  Company Number: FR-BAXTER-2014BAX067066

PATIENT
  Sex: Male
  Weight: 54 kg

DRUGS (17)
  1. VINTENE, SOLUTION INJECTABLE POUR PERFUSION [Suspect]
     Active Substance: AMINO ACIDS
     Route: 042
     Dates: start: 20120527
  2. SODIUM LACTATE. [Suspect]
     Active Substance: SODIUM LACTATE
     Indication: PARENTERAL NUTRITION
     Route: 042
     Dates: start: 20141104
  3. KCL [Suspect]
     Active Substance: POTASSIUM CHLORIDE
     Indication: PARENTERAL NUTRITION
     Route: 042
     Dates: start: 20141104
  4. OE PEDIATRIQUE [Suspect]
     Active Substance: UNSPECIFIED INGREDIENT
     Indication: PARENTERAL NUTRITION
     Route: 042
     Dates: start: 20141104
  5. CALCIUM GLUCONATE. [Suspect]
     Active Substance: CALCIUM GLUCONATE
     Indication: PARENTERAL NUTRITION
     Route: 042
     Dates: start: 20141104
  6. MAGNESIUM CHLORIDE. [Suspect]
     Active Substance: MAGNESIUM CHLORIDE
     Indication: PARENTERAL NUTRITION
     Route: 042
     Dates: start: 20141104
  7. RANITIDINE [Suspect]
     Active Substance: RANITIDINE\RANITIDINE HYDROCHLORIDE
     Indication: PARENTERAL NUTRITION
     Route: 042
     Dates: start: 20141104
  8. VITAMIN K [Suspect]
     Active Substance: PHYTONADIONE
     Indication: PARENTERAL NUTRITION
     Route: 042
     Dates: start: 20141104
  9. SMOF [Suspect]
     Active Substance: AMINO ACIDS\DEXTROSE\ELECTROLYTES NOS\SOYBEAN OIL
     Indication: PARENTERAL NUTRITION
     Route: 042
     Dates: start: 20141104
  10. CERNEVIT [Suspect]
     Active Substance: VITAMINS
     Route: 042
     Dates: start: 20120527
  11. PHOSPHORUS [Suspect]
     Active Substance: PHOSPHORUS
     Indication: PARENTERAL NUTRITION
     Route: 042
     Dates: start: 20141104
  12. VINTENE, SOLUTION INJECTABLE POUR PERFUSION [Suspect]
     Active Substance: AMINO ACIDS
     Indication: PARENTERAL NUTRITION
     Route: 042
     Dates: start: 20141104
  13. CERNEVIT [Suspect]
     Active Substance: VITAMINS
     Indication: PARENTERAL NUTRITION
     Route: 042
     Dates: start: 20141104
  14. SODIUM CHLORIDE 20% [Suspect]
     Active Substance: SODIUM CHLORIDE
     Indication: PARENTERAL NUTRITION
     Route: 042
     Dates: start: 20141104
  15. ZINC [Suspect]
     Active Substance: ZINC\ZINC CHLORIDE
     Indication: PARENTERAL NUTRITION
     Route: 042
     Dates: start: 20141104
  16. HYPNOVEL [Concomitant]
     Active Substance: MIDAZOLAM\MIDAZOLAM HYDROCHLORIDE
     Indication: PRODUCT USED FOR UNKNOWN INDICATION
     Route: 065
  17. GLUCOSE, MONOHYDRATE_GLUCOSE, MONOHYDRATE 10.00 %_SOLUTION FOR INFUSIO [Suspect]
     Active Substance: DEXTROSE MONOHYDRATE
     Indication: PARENTERAL NUTRITION
     Route: 042
     Dates: start: 20141104

REACTIONS (5)
  - Malaise [Recovered/Resolved]
  - Pyrexia [Recovered/Resolved]
  - Infusion related reaction [None]
  - Pain [Unknown]
  - Chills [Recovered/Resolved]

NARRATIVE: CASE EVENT DATE: 20141104
